FAERS Safety Report 23085203 (Version 1)
Quarter: 2023Q4

REPORT INFORMATION
  Report Type: Spontaneous
  Country: CA (occurrence: CA)
  Receive Date: 20231019
  Receipt Date: 20231019
  Transmission Date: 20240110
  Serious: Yes (Death)
  Sender: FDA-Public Use
  Company Number: CA-PFIZER INC-PV202200097405

PATIENT
  Age: 70 Year
  Sex: Female
  Weight: 62.5 kg

DRUGS (8)
  1. TRAZIMERA [Suspect]
     Active Substance: TRASTUZUMAB-QYYP
     Indication: Breast cancer metastatic
     Dosage: 8 MG/KG, 504 MG LOADING THEN 6 MG/KG AT 378 MG EVERY (Q) 3 WEEKS MAINTENANCE
     Route: 042
  2. TRAZIMERA [Suspect]
     Active Substance: TRASTUZUMAB-QYYP
     Dosage: 502 MG
     Route: 042
     Dates: start: 20221115
  3. TRAZIMERA [Suspect]
     Active Substance: TRASTUZUMAB-QYYP
     Dosage: 502 MG
     Route: 042
     Dates: start: 20221115
  4. TRAZIMERA [Suspect]
     Active Substance: TRASTUZUMAB-QYYP
     Dosage: 376 MG
     Route: 042
     Dates: start: 20221207
  5. TRAZIMERA [Suspect]
     Active Substance: TRASTUZUMAB-QYYP
     Dosage: 376 MG, EVERY 3 WEEKS
     Route: 042
     Dates: start: 20221228
  6. TRAZIMERA [Suspect]
     Active Substance: TRASTUZUMAB-QYYP
     Dosage: 376 MG
     Route: 042
     Dates: start: 20230117
  7. TRAZIMERA [Suspect]
     Active Substance: TRASTUZUMAB-QYYP
     Dosage: 376 MG
     Route: 042
     Dates: start: 20230207
  8. TRAZIMERA [Suspect]
     Active Substance: TRASTUZUMAB-QYYP
     Dosage: 381 MG
     Route: 042
     Dates: start: 20230329

REACTIONS (25)
  - Death [Fatal]
  - Cognitive disorder [Unknown]
  - Decreased appetite [Unknown]
  - Somnolence [Unknown]
  - Blood pressure fluctuation [Recovered/Resolved]
  - Constipation [Unknown]
  - Diarrhoea [Unknown]
  - Fatigue [Recovering/Resolving]
  - Rash [Unknown]
  - Vomiting [Unknown]
  - Nausea [Not Recovered/Not Resolved]
  - Pain [Unknown]
  - Depressed mood [Unknown]
  - Dyspnoea [Unknown]
  - Blood pressure systolic increased [Unknown]
  - Mucosal inflammation [Recovered/Resolved]
  - Weight increased [Unknown]
  - Malaise [Not Recovered/Not Resolved]
  - Weight decreased [Unknown]
  - Epistaxis [Unknown]
  - Influenza [Unknown]
  - Blood pressure decreased [Unknown]
  - Off label use [Unknown]
  - Off label use [Unknown]
  - Inappropriate schedule of product administration [Unknown]

NARRATIVE: CASE EVENT DATE: 20221115
